FAERS Safety Report 4775510-8 (Version None)
Quarter: 2005Q3

REPORT INFORMATION
  Report Type: 
  Country: None (occurrence: None)
  Receive Date: 20050922
  Receipt Date: 20050912
  Transmission Date: 20060218
  Serious: Yes (Other)
  Sender: FDA-Public Use
  Company Number: US-JNJFOC-20050902932

PATIENT
  Sex: Female
  Weight: 51.71 kg

DRUGS (22)
  1. INFLIXIMAB [Suspect]
     Indication: RHEUMATOID ARTHRITIS
     Route: 042
  2. MOBIC [Concomitant]
  3. HYDROXYCHLOROQUINE SULFATE [Concomitant]
  4. METHOTREXATE [Concomitant]
  5. FOSAMAX [Concomitant]
  6. FOLIC ACID [Concomitant]
  7. CITRACAL + D [Concomitant]
  8. CITRACAL + D [Concomitant]
  9. MULTI-VITAMINS [Concomitant]
  10. MULTI-VITAMINS [Concomitant]
  11. MULTI-VITAMINS [Concomitant]
  12. MULTI-VITAMINS [Concomitant]
  13. MULTI-VITAMINS [Concomitant]
  14. MULTI-VITAMINS [Concomitant]
  15. MULTI-VITAMINS [Concomitant]
  16. MULTI-VITAMINS [Concomitant]
  17. COQ10 [Concomitant]
  18. XALATAN [Concomitant]
  19. ASPIRIN [Concomitant]
  20. NORVASC [Concomitant]
  21. TYLENOL SINUS [Concomitant]
  22. ALLEGRA [Concomitant]

REACTIONS (1)
  - AUTOIMMUNE THROMBOCYTOPENIA [None]
